FAERS Safety Report 5753436-0 (Version None)
Quarter: 2008Q2

REPORT INFORMATION
  Report Type: 
  Country: None (occurrence: None)
  Receive Date: 20080530
  Receipt Date: 20080521
  Transmission Date: 20081010
  Serious: Yes (Other)
  Sender: FDA-Public Use
  Company Number: BE-NOVOPROD-275650

PATIENT
  Age: 68 Year
  Sex: Female
  Weight: 85 kg

DRUGS (14)
  1. REPAGLINIDE [Suspect]
  2. LASIX [Concomitant]
  3. ALDACTAZINE [Concomitant]
     Dosage: ALTIZIDE 15MG + SPIRONOLACTONE 25MG
  4. PYRIDOXINE                         /00058902/ [Concomitant]
  5. BURINEX [Concomitant]
  6. SELECTOL [Concomitant]
  7. GLUCOPHAGE [Concomitant]
  8. SULFARLEM                          /00558302/ [Concomitant]
  9. DOMPERIDONE [Concomitant]
  10. TEMESTA                            /00273201/ [Concomitant]
  11. BERIVINE [Concomitant]
  12. XANAX [Concomitant]
  13. VENORUTON INTENS [Concomitant]
  14. PERDOLAN DUO [Concomitant]

REACTIONS (1)
  - BLISTER [None]
